FAERS Safety Report 4578070-X (Version None)
Quarter: 2005Q1

REPORT INFORMATION
  Report Type: 
  Country: None (occurrence: None)
  Receive Date: 20050209
  Receipt Date: 20050126
  Transmission Date: 20050727
  Serious: Yes (Hospitalization)
  Sender: FDA-Public Use
  Company Number: FR_050105720

PATIENT
  Sex: Female

DRUGS (9)
  1. EVISTA [Suspect]
     Indication: OSTEOPOROSIS
     Dosage: 60 MG DAY
     Dates: start: 20040101
  2. FORTEO [Suspect]
     Indication: OSTEOPOROSIS
     Dosage: 20 UG DAY
  3. ACETAMINOPHEN [Concomitant]
  4. VOLTAREN [Concomitant]
  5. NEURONTIN (GABAPENTIN PFIZER) [Concomitant]
  6. MORPHINE SULFATE [Concomitant]
  7. ACTISKENAN (MORPHINE SULFATE) [Concomitant]
  8. PRIMPERAN ELIXIR [Concomitant]
  9. LANSOPRAZOLE [Concomitant]

REACTIONS (8)
  - CHEST DISCOMFORT [None]
  - DYSPHAGIA [None]
  - DYSPNOEA [None]
  - MUSCLE SPASMS [None]
  - NAUSEA [None]
  - OEDEMA PERIPHERAL [None]
  - SPINAL FRACTURE [None]
  - URINARY INCONTINENCE [None]
